FAERS Safety Report 8816600 (Version 1)
Quarter: 2012Q4

REPORT INFORMATION
  Report Type: Spontaneous
  Country: JP (occurrence: None)
  Receive Date: 20120928
  Receipt Date: 20120928
  Transmission Date: 20130627
  Serious: Yes (Other)
  Sender: FDA-Public Use
  Company Number: AE-SPE-2012-012

PATIENT
  Age: 43 Year
  Sex: Male

DRUGS (1)
  1. MEIACT MS [Suspect]
     Route: 048
     Dates: start: 201102, end: 201102

REACTIONS (3)
  - Drug-induced liver injury [None]
  - Oculomucocutaneous syndrome [None]
  - Stevens-Johnson syndrome [None]
